FAERS Safety Report 13347598 (Version 1)
Quarter: 2017Q1

REPORT INFORMATION
  Report Type: Spontaneous
  Country: US (occurrence: US)
  Receive Date: 20170317
  Receipt Date: 20170317
  Transmission Date: 20170428
  Serious: No
  Sender: FDA-Public Use
  Company Number: US-GLAXOSMITHKLINE-US2017036163

PATIENT
  Age: 63 Year
  Sex: Female

DRUGS (1)
  1. ABREVA [Suspect]
     Active Substance: DOCOSANOL
     Indication: ORAL HERPES
     Dosage: UNK, USED AT LEAST 5 TIMES A DAY
     Route: 061
     Dates: start: 20170219, end: 20170223

REACTIONS (2)
  - Condition aggravated [Unknown]
  - Oral herpes [Unknown]

NARRATIVE: CASE EVENT DATE: 20170223
